FAERS Safety Report 9408975 (Version 1)
Quarter: 2013Q3

REPORT INFORMATION
  Report Type: Spontaneous
  Country: US (occurrence: None)
  Receive Date: 20130717
  Receipt Date: 20130717
  Transmission Date: 20140515
  Serious: Yes (Other)
  Sender: FDA-Public Use
  Company Number: None

PATIENT
  Age: 11 Year
  Sex: Female

DRUGS (1)
  1. EXJADE [Suspect]
     Dosage: 625MG DAILY PO
     Route: 048
     Dates: start: 20120815, end: 20130615

REACTIONS (2)
  - Pruritus [None]
  - Tongue ulceration [None]
